FAERS Safety Report 7076763-6 (Version None)
Quarter: 2010Q4

REPORT INFORMATION
  Report Type: 
  Country: None (occurrence: None)
  Receive Date: 20101029
  Receipt Date: 20101029
  Transmission Date: 20110411
  Serious: Yes (Hospitalization)
  Sender: FDA-Public Use
  Company Number: None

PATIENT
  Age: 44 Year
  Sex: Male
  Weight: 87.9978 kg

DRUGS (6)
  1. EPOGEN [Suspect]
     Indication: ANAEMIA
     Dosage: 40,000 UNITS EVERY THURSDAY SUBCUTANEOUSLY
     Route: 058
     Dates: start: 20100511, end: 20100607
  2. PEGINTERFERON ALFA-2A [Concomitant]
  3. RIBAVIRIN [Concomitant]
  4. CLOZAPINE [Concomitant]
  5. LITHIUM CARBONATE [Concomitant]
  6. QUETIAPINE [Suspect]

REACTIONS (1)
  - DEEP VEIN THROMBOSIS [None]
